FAERS Safety Report 14626404 (Version 1)
Quarter: 2018Q1

REPORT INFORMATION
  Report Type: Spontaneous
  Country: US (occurrence: US)
  Receive Date: 20180310
  Receipt Date: 20180310
  Transmission Date: 20180509
  Serious: Yes (Hospitalization)
  Sender: FDA-Public Use
  Company Number: None

PATIENT
  Age: 73 Year
  Sex: Female
  Weight: 105.7 kg

DRUGS (14)
  1. XELODA [Suspect]
     Active Substance: CAPECITABINE
     Dates: end: 20171221
  2. IMODIUM [Concomitant]
     Active Substance: LOPERAMIDE HYDROCHLORIDE
  3. ATENOLOL. [Concomitant]
     Active Substance: ATENOLOL
  4. DILAUDID [Concomitant]
     Active Substance: HYDROMORPHONE HYDROCHLORIDE
  5. LOVENOX [Concomitant]
     Active Substance: ENOXAPARIN SODIUM
  6. LOMOTIL [Concomitant]
     Active Substance: ATROPINE SULFATE\DIPHENOXYLATE HYDROCHLORIDE
  7. POTASSIUM [Concomitant]
     Active Substance: POTASSIUM
  8. PRILOSEC [Concomitant]
     Active Substance: OMEPRAZOLE MAGNESIUM
  9. TYLENOL [Concomitant]
     Active Substance: ACETAMINOPHEN
  10. ZANAFLEX [Concomitant]
     Active Substance: TIZANIDINE HYDROCHLORIDE
  11. LASIX [Concomitant]
     Active Substance: FUROSEMIDE
  12. LIDOCAINE. [Concomitant]
     Active Substance: LIDOCAINE
  13. MAGNESIUM [Concomitant]
     Active Substance: MAGNESIUM
  14. VITAMIN D [Concomitant]
     Active Substance: CHOLECALCIFEROL

REACTIONS (9)
  - Acute kidney injury [None]
  - Hyponatraemia [None]
  - Back pain [None]
  - Hyperkalaemia [None]
  - Nausea [None]
  - Vomiting [None]
  - Asthenia [None]
  - Platelet count increased [None]
  - Bradycardia [None]

NARRATIVE: CASE EVENT DATE: 20180228
